FAERS Safety Report 10622997 (Version 2)
Quarter: 2015Q1

REPORT INFORMATION
  Report Type: Report from Study
  Country: DE (occurrence: DE)
  Receive Date: 20141203
  Receipt Date: 20150115
  Transmission Date: 20150720
  Serious: Yes (Hospitalization)
  Sender: FDA-Public Use
  Company Number: DE-ABBVIE-14K-062-1314137-00

PATIENT
  Age: 49 Year
  Sex: Male
  Weight: 76.8 kg

DRUGS (7)
  1. HUMIRA [Suspect]
     Active Substance: ADALIMUMAB
     Route: 058
     Dates: start: 201409
  2. OMEPRAZOLE. [Concomitant]
     Active Substance: OMEPRAZOLE
     Indication: PRODUCT USED FOR UNKNOWN INDICATION
     Dosage: 1-0-0
  3. HUMIRA [Suspect]
     Active Substance: ADALIMUMAB
     Route: 058
     Dates: end: 201409
  4. HUMIRA [Suspect]
     Active Substance: ADALIMUMAB
     Dosage: WEEK 2
     Route: 058
     Dates: start: 201312, end: 201312
  5. HUMIRA [Suspect]
     Active Substance: ADALIMUMAB
     Indication: CROHN^S DISEASE
     Dosage: WEEK 0
     Route: 058
     Dates: start: 20131201, end: 20131201
  6. AZATHIOPRINE/6-MP [Concomitant]
     Indication: PRODUCT USED FOR UNKNOWN INDICATION
  7. PANTOZOL [Concomitant]
     Active Substance: PANTOPRAZOLE SODIUM
     Indication: PRODUCT USED FOR UNKNOWN INDICATION
     Dosage: 1-0-0-0

REACTIONS (13)
  - Intestinal stenosis [Not Recovered/Not Resolved]
  - Vertigo [Unknown]
  - Subileus [Unknown]
  - Crohn^s disease [Unknown]
  - Ileal stenosis [Unknown]
  - Fatigue [Unknown]
  - Mechanical ileus [Unknown]
  - Abdominal pain [Unknown]
  - Monocyte count increased [Unknown]
  - Haemoglobin decreased [Unknown]
  - Diarrhoea [Unknown]
  - Abdominal lymphadenopathy [Unknown]
  - Red blood cell count decreased [Unknown]

NARRATIVE: CASE EVENT DATE: 201409
